FAERS Safety Report 5264409-9 (Version None)
Quarter: 2007Q1

REPORT INFORMATION
  Report Type: 
  Country: None (occurrence: None)
  Receive Date: 20070309
  Receipt Date: 20070226
  Transmission Date: 20070707
  Serious: Yes (Death, Other)
  Sender: FDA-Public Use
  Company Number: GXKR2007US02031

PATIENT
  Sex: 0

DRUGS (2)
  1. INDOMETHACIN [Suspect]
     Dosage: INTRA-UTERINE
     Route: 015
  2. TERBUTALINE SULFATE [Concomitant]

REACTIONS (8)
  - DRUG ADMINISTRATION ERROR [None]
  - DRUG EXPOSURE DURING PREGNANCY [None]
  - HYDROPS FOETALIS [None]
  - NEONATAL RESPIRATORY DISTRESS SYNDROME [None]
  - NEONATAL RESPIRATORY FAILURE [None]
  - PATENT DUCTUS ARTERIOSUS [None]
  - PLACENTAL TRANSFUSION SYNDROME [None]
  - STREPTOCOCCAL SEPSIS [None]
